FAERS Safety Report 8779813 (Version 1)
Quarter: 2012Q4

REPORT INFORMATION
  Report Type: 
  Country: JP (occurrence: JP)
  Receive Date: 20120913
  Receipt Date: 20120913
  Transmission Date: 20130627
  Serious: Yes (Other)
  Sender: FDA-Public Use
  Company Number: JP-UCBSA-064568

PATIENT
  Age: 64 Year
  Sex: Male

DRUGS (4)
  1. XYZAL [Suspect]
     Indication: URTICARIA CHRONIC
     Dosage: IN THE EVENING
     Route: 048
     Dates: start: 20120724, end: 20120726
  2. ZYRTEC [Concomitant]
     Route: 048
     Dates: start: 20101119, end: 201207
  3. HOMOCLOMIN [Concomitant]
     Indication: URTICARIA CHRONIC
     Route: 048
     Dates: start: 20101119
  4. GASTER [Concomitant]
     Route: 048
     Dates: start: 20101119

REACTIONS (4)
  - Angioedema [Recovered/Resolved]
  - Lip oedema [Recovered/Resolved]
  - Lip swelling [Recovered/Resolved]
  - Urticaria [Recovering/Resolving]
